FAERS Safety Report 10087031 (Version 1)
Quarter: 2014Q2

REPORT INFORMATION
  Report Type: Spontaneous
  Country: US (occurrence: US)
  Receive Date: 20140418
  Receipt Date: 20140418
  Transmission Date: 20141212
  Serious: Yes (Other)
  Sender: FDA-Public Use
  Company Number: US-ELI_LILLY_AND_COMPANY-US201404002434

PATIENT
  Sex: Female

DRUGS (12)
  1. CYMBALTA [Suspect]
     Indication: PRODUCT USED FOR UNKNOWN INDICATION
     Dosage: 60 MG, QD
     Route: 048
     Dates: end: 2012
  2. CYMBALTA [Suspect]
     Dosage: 60 MG, QOD
     Route: 048
     Dates: start: 2012
  3. CYMBALTA [Suspect]
     Dosage: 60 MG, QD
     Dates: start: 2012
  4. CYMBALTA [Suspect]
     Dosage: 60 MG, OTHER
     Route: 048
  5. CYMBALTA [Suspect]
     Dosage: 30 MG, OTHER
     Route: 048
  6. HUMALOG MIX [Concomitant]
     Dosage: UNK, UNKNOWN
     Route: 065
  7. GLYBURIDE [Concomitant]
     Dosage: UNK, UNKNOWN
     Route: 065
  8. SIMVASTATIN [Concomitant]
     Dosage: UNK, UNKNOWN
     Route: 065
  9. METORMIN [Concomitant]
     Dosage: UNK, UNKNOWN
     Route: 065
  10. LANTUS [Concomitant]
     Dosage: UNK, UNKNOWN
     Route: 065
  11. METOPROLOL [Concomitant]
     Dosage: UNK, UNKNOWN
     Route: 065
  12. LISINOPRIL [Concomitant]
     Dosage: UNK, UNKNOWN
     Route: 065

REACTIONS (7)
  - Endometrial cancer [Unknown]
  - Endometrial hypertrophy [Unknown]
  - Drug dependence [Unknown]
  - Intentional product misuse [Recovered/Resolved]
  - Irritability [Recovered/Resolved]
  - Nervousness [Recovered/Resolved]
  - Nervousness [Recovering/Resolving]
